FAERS Safety Report 7681587-2 (Version None)
Quarter: 2011Q3

REPORT INFORMATION
  Report Type: 
  Country: None (occurrence: None)
  Receive Date: 20110812
  Receipt Date: 20110802
  Transmission Date: 20111222
  Serious: Yes (Other)
  Sender: FDA-Public Use
  Company Number: PHHY2010US73832

PATIENT
  Sex: Male
  Weight: 115.65 kg

DRUGS (15)
  1. TASIGNA [Suspect]
     Indication: CHRONIC MYELOID LEUKAEMIA
     Dosage: 400 MG, BID
     Route: 048
     Dates: start: 20090912
  2. IMODIUM [Concomitant]
  3. PLAVIX [Concomitant]
  4. VITAMIN D [Concomitant]
  5. BYSTOLIC [Concomitant]
  6. FLOVENT [Concomitant]
  7. AVAPRO [Concomitant]
     Dosage: 150 MG, UNK
  8. LESCOL [Concomitant]
     Dosage: UNK
  9. ZYRTEC [Concomitant]
  10. DEMADEX [Concomitant]
  11. LOMOTIL [Concomitant]
  12. LOVAZA [Concomitant]
  13. POTASSIUM CITRATE [Concomitant]
  14. MAGNESIUM OXIDE [Concomitant]
     Dosage: 250 MG, QD
  15. ASPIRIN [Concomitant]

REACTIONS (2)
  - CROHN'S DISEASE [None]
  - MYALGIA [None]
